FAERS Safety Report 12729963 (Version 2)
Quarter: 2016Q3

REPORT INFORMATION
  Report Type: Report from Study
  Country: FR (occurrence: FR)
  Receive Date: 20160909
  Receipt Date: 20160916
  Transmission Date: 20161109
  Serious: Yes (Hospitalization)
  Sender: FDA-Public Use
  Company Number: FR-JNJFOC-20160903340

PATIENT
  Age: 56 Year
  Sex: Female
  Weight: 70 kg

DRUGS (4)
  1. LEVOTHYROX [Concomitant]
     Active Substance: LEVOTHYROXINE
     Dosage: 50 MICROGRAM
     Route: 065
  2. CAELYX [Suspect]
     Active Substance: DOXORUBICIN HYDROCHLORIDE
     Indication: OVARIAN CANCER
     Dosage: (1 CYCLE), 1 DAY
     Route: 042
     Dates: start: 20151006, end: 20151006
  3. PARACETAMOL [Concomitant]
     Active Substance: ACETAMINOPHEN
     Dosage: PRN MEDICATION (AS NEEDED)
     Route: 065
  4. YONDELIS [Suspect]
     Active Substance: TRABECTEDIN
     Indication: OVARIAN CANCER
     Dosage: (1CYCLE) 1 DAY
     Route: 042
     Dates: start: 20151006, end: 20151006

REACTIONS (11)
  - Asthenia [Recovered/Resolved]
  - Pancytopenia [Recovered/Resolved]
  - Nausea [Recovered/Resolved]
  - Hepatocellular injury [Recovered/Resolved]
  - Decreased appetite [Recovered/Resolved]
  - Thrombocytopenia [Recovering/Resolving]
  - General physical health deterioration [Unknown]
  - Vomiting [Recovered/Resolved]
  - Pyrexia [Recovered/Resolved]
  - Febrile bone marrow aplasia [Recovered/Resolved]
  - Anaemia [Unknown]

NARRATIVE: CASE EVENT DATE: 201510
